FAERS Safety Report 16177074 (Version 1)
Quarter: 2019Q2

REPORT INFORMATION
  Report Type: Spontaneous
  Country: US (occurrence: US)
  Receive Date: 20190409
  Receipt Date: 20190409
  Transmission Date: 20190711
  Serious: Yes (Other)
  Sender: FDA-Public Use
  Company Number: US-SUN PHARMACEUTICAL INDUSTRIES LTD-2018US-182572

PATIENT
  Age: 72 Year
  Sex: Male

DRUGS (4)
  1. TACROLIMUS. [Suspect]
     Active Substance: TACROLIMUS
     Indication: IMMUNOSUPPRESSANT DRUG THERAPY
     Dosage: 9 MILLIGRAM, DAILY [5 MG IN THE MORNING AND 4 MG IN THE EVENING]
     Route: 065
  2. VALGANCOCICLOVIR [Concomitant]
     Indication: ANTIVIRAL PROPHYLAXIS
     Dosage: 450 MILLIGRAM, DAILY
     Route: 065
  3. LEFLUNOMIDE. [Concomitant]
     Active Substance: LEFLUNOMIDE
     Indication: BK VIRUS INFECTION
     Dosage: 10 MILLIGRAM, DAILY
     Route: 065
  4. PREDNISONE. [Suspect]
     Active Substance: PREDNISONE
     Indication: IMMUNOSUPPRESSANT DRUG THERAPY
     Dosage: 5 MILLIGRAM, DAILY
     Route: 065

REACTIONS (6)
  - Fungal infection [Unknown]
  - Drug level above therapeutic [Unknown]
  - Lung infiltration [Recovering/Resolving]
  - Polyomavirus-associated nephropathy [Unknown]
  - Disease recurrence [Unknown]
  - Brain abscess [Recovered/Resolved]
